FAERS Safety Report 21699610 (Version 7)
Quarter: 2024Q2

REPORT INFORMATION
  Report Type: Spontaneous
  Country: US (occurrence: US)
  Receive Date: 20221208
  Receipt Date: 20240621
  Transmission Date: 20240716
  Serious: Yes (Death, Hospitalization, Other)
  Sender: FDA-Public Use
  Company Number: US-PFIZER INC-PV202200118544

PATIENT
  Age: 85 Year
  Sex: Female
  Weight: 65.306 kg

DRUGS (8)
  1. XELJANZ XR [Suspect]
     Active Substance: TOFACITINIB CITRATE
     Indication: Rheumatoid arthritis
     Dosage: 11 MG, DAILY
     Dates: start: 2021
  2. ATORVASTATIN [Concomitant]
     Active Substance: ATORVASTATIN
     Dosage: UNK, STARTED 4 YEARS AGO
     Dates: start: 2020
  3. GABAPENTIN [Concomitant]
     Active Substance: GABAPENTIN
     Dosage: UNK, STARTED 13 YEARS AGO
     Dates: start: 2011
  4. IMURAN [Concomitant]
     Active Substance: AZATHIOPRINE
     Dosage: UNK, STARTED 4 YEARS AGO
     Dates: start: 2020
  5. METOPROLOL [Concomitant]
     Active Substance: METOPROLOL
     Dosage: UNK, STARTED 20 YEARS AGO
     Dates: start: 2004
  6. ASPIRIN [Concomitant]
     Active Substance: ASPIRIN
  7. CELEBREX [Concomitant]
     Active Substance: CELECOXIB
  8. TRELEGY ELLIPTA [Concomitant]
     Active Substance: FLUTICASONE FUROATE\UMECLIDINIUM BROMIDE\VILANTEROL TRIFENATATE

REACTIONS (5)
  - Death [Fatal]
  - Blood cholesterol increased [Unknown]
  - Oral surgery [Unknown]
  - Auditory disorder [Unknown]
  - Pain [Unknown]

NARRATIVE: CASE EVENT DATE: 20221205
